FAERS Safety Report 11631625 (Version 3)
Quarter: 2015Q4

REPORT INFORMATION
  Report Type: Spontaneous
  Country: DE (occurrence: DE)
  Receive Date: 20151015
  Receipt Date: 20151029
  Transmission Date: 20160304
  Serious: Yes (Disabling)
  Sender: FDA-Public Use
  Company Number: DE-AMGEN-DEUSP2015105876

PATIENT
  Sex: Female

DRUGS (19)
  1. PROLIA [Suspect]
     Active Substance: DENOSUMAB
     Indication: OSTEOPOROSIS
     Dosage: 60 MG, Q6MO
     Route: 065
     Dates: start: 201301
  2. EXFORGE [Concomitant]
     Active Substance: AMLODIPINE BESYLATE\VALSARTAN
     Indication: HYPERTENSION
     Dosage: 5MG/80MG, HALF TABLET DAILY
  3. SPIRIVA [Concomitant]
     Active Substance: TIOTROPIUM BROMIDE MONOHYDRATE
     Indication: OBSTRUCTIVE AIRWAYS DISORDER
  4. CELEBREX [Concomitant]
     Active Substance: CELECOXIB
     Indication: ARTHRALGIA
     Dosage: 100 MG, BID
     Dates: start: 2010, end: 201405
  5. SPIRIVA [Concomitant]
     Active Substance: TIOTROPIUM BROMIDE MONOHYDRATE
     Indication: SCOLIOSIS
     Dosage: 18 MUG,QD
     Dates: start: 2010
  6. SYMBICORT [Concomitant]
     Active Substance: BUDESONIDE\FORMOTEROL FUMARATE DIHYDRATE
     Indication: OBSTRUCTIVE AIRWAYS DISORDER
  7. LEFLUNOMID WINTHROP [Concomitant]
     Indication: DIARRHOEA
     Dosage: 10 MG, HALF TABLET DAILY
     Dates: start: 20130713
  8. CELEBREX [Concomitant]
     Active Substance: CELECOXIB
     Indication: PAIN
  9. ESTRAGEST [Concomitant]
     Active Substance: ESTRADIOL\NORETHINDRONE ACETATE
     Indication: DISCOMFORT
     Dosage: LAST YEAR NO MORE THERAPY WITH THAT YEAR BEFORE 2 TIMES IN A WEEK
     Dates: end: 201305
  10. PREDNISOLON                        /00016201/ [Concomitant]
     Active Substance: PREDNISOLONE
     Indication: RHEUMATIC DISORDER
     Dosage: 5 MG, AS NECESSARY, 6 TIMES A YEAR THEN FOR THREE WEEKS IN A ROW
     Dates: start: 2010
  11. FENTANYL. [Concomitant]
     Active Substance: FENTANYL
     Indication: PAIN
     Dosage: 50 MUG, ALL DAYS
  12. FLUOXETINE [Concomitant]
     Active Substance: FLUOXETINE HYDROCHLORIDE
     Indication: MENTAL DISORDER
  13. PANTOPRAZOL TAD [Concomitant]
     Indication: PROPHYLAXIS
     Dosage: UNK, BID
  14. CELESTAN                           /00008501/ [Concomitant]
     Indication: ARTHRALGIA
  15. FLUOXETINE [Concomitant]
     Active Substance: FLUOXETINE HYDROCHLORIDE
     Indication: DIARRHOEA
     Dosage: 20, HALF TABLET DAILY
     Dates: start: 2010, end: 201411
  16. SYMBICORT [Concomitant]
     Active Substance: BUDESONIDE\FORMOTEROL FUMARATE DIHYDRATE
     Indication: SCOLIOSIS
     Dosage: UNK, BID
     Dates: start: 2010, end: 2014
  17. NEBIVOLOL. [Concomitant]
     Active Substance: NEBIVOLOL
     Indication: HYPERTENSION
     Dosage: 5 MG, HALF TABLET DAILY
     Dates: start: 2010, end: 2015
  18. TORASEMID [Concomitant]
     Active Substance: TORSEMIDE
     Indication: OEDEMA
     Dosage: 10 MG, QD
     Dates: start: 2010
  19. TORASEMID [Concomitant]
     Active Substance: TORSEMIDE
     Indication: HYPERTENSION

REACTIONS (2)
  - Tooth discolouration [Not Recovered/Not Resolved]
  - Dental caries [Not Recovered/Not Resolved]

NARRATIVE: CASE EVENT DATE: 2014
